FAERS Safety Report 23563925 (Version 1)
Quarter: 2024Q1

REPORT INFORMATION
  Report Type: Spontaneous
  Country: IT (occurrence: IT)
  Receive Date: 20240226
  Receipt Date: 20240226
  Transmission Date: 20240410
  Serious: Yes (Hospitalization)
  Sender: FDA-Public Use
  Company Number: None

PATIENT
  Age: 61 Year
  Sex: Male

DRUGS (1)
  1. LINAGLIPTIN [Suspect]
     Active Substance: LINAGLIPTIN
     Indication: Type 2 diabetes mellitus
     Route: 048
     Dates: start: 20230101, end: 20240129

REACTIONS (4)
  - Oral mucosa erosion [Recovering/Resolving]
  - Pemphigus [Recovering/Resolving]
  - Dermatitis bullous [Recovering/Resolving]
  - Lip erosion [Recovering/Resolving]

NARRATIVE: CASE EVENT DATE: 20240129
